FAERS Safety Report 9701512 (Version 1)
Quarter: 2013Q4

REPORT INFORMATION
  Report Type: Spontaneous
  Country: NL (occurrence: NL)
  Receive Date: 20131121
  Receipt Date: 20131121
  Transmission Date: 20140711
  Serious: Yes (Disabling)
  Sender: FDA-Public Use
  Company Number: NL-009507513-1311NLD007561

PATIENT
  Age: 60 Year
  Sex: Female
  Weight: 90 kg

DRUGS (6)
  1. AMITRIPTYLINE HYDROCHLORIDE [Suspect]
     Indication: DEPRESSION
     Dosage: DAILY 1 OR 2 OF 5 TYPES
     Route: 048
     Dates: start: 2000
  2. SERTRALINE HYDROCHLORIDE [Suspect]
     Indication: DEPRESSION
     Dosage: 50 MG, BID, 2 TIMES A DAY 1 PIECE
     Dates: start: 201303, end: 201310
  3. HYDROCHLOROTHIAZIDE [Concomitant]
     Dosage: UNK, QD, ONE TIME A DAY 6 TABLETS, MOST 1 X 2 2 TABLETS 2 X D
     Route: 048
     Dates: start: 2000
  4. ASPIRIN [Concomitant]
     Dosage: 80 MG, QD, ONE TIME A DAY 6 TABLETS,  MOST 1 X 2 2 TABLETS 2 X D
     Route: 048
     Dates: start: 2000
  5. PANTOPRAZOLE SODIUM [Concomitant]
     Dosage: 20 MG, QD,ONE TIME A DAY 6 TABLETS, MOST 1 X 2 2 TABLETS 2 X D
     Route: 048
     Dates: start: 2000
  6. PROPRANOLOL HYDROCHLORIDE [Concomitant]
     Dosage: UNK, QD, ONE TIME A DAY 6 TABLETS, MOST 1 X 2 2 TABLETS 2 X D
     Dates: start: 2000

REACTIONS (3)
  - Hyperhidrosis [Not Recovered/Not Resolved]
  - Dry eye [Not Recovered/Not Resolved]
  - Dry mouth [Not Recovered/Not Resolved]
